FAERS Safety Report 12859615 (Version 3)
Quarter: 2016Q4

REPORT INFORMATION
  Report Type: Spontaneous
  Country: US (occurrence: US)
  Receive Date: 20161018
  Receipt Date: 20161104
  Transmission Date: 20170207
  Serious: Yes (Hospitalization, Other)
  Sender: FDA-Public Use
  Company Number: US-ACTELION-A-US2016-143554

PATIENT
  Age: 69 Year
  Sex: Male
  Weight: 175 kg

DRUGS (22)
  1. GABAPENTIN. [Concomitant]
     Active Substance: GABAPENTIN
  2. FLUTICASONE [Concomitant]
     Active Substance: FLUTICASONE\FLUTICASONE PROPIONATE
  3. ARTIFICIAL TEARS [Concomitant]
     Active Substance: GLYCERIN\HYPROMELLOSES\POLYETHYLENE GLYCOL 400
  4. VELETRI [Suspect]
     Active Substance: EPOPROSTENOL
     Indication: PULMONARY HYPERTENSION
     Route: 042
  5. MYCOPHENOLATE MOFETIL. [Concomitant]
     Active Substance: MYCOPHENOLATE MOFETIL
  6. POTASSIUM CL [Concomitant]
     Active Substance: POTASSIUM CHLORIDE
  7. FUROSEMIDE. [Concomitant]
     Active Substance: FUROSEMIDE
  8. AMBRISENTAN [Suspect]
     Active Substance: AMBRISENTAN
     Indication: PULMONARY HYPERTENSION
     Dosage: 10 MG, QD
     Route: 048
     Dates: start: 20160218
  9. DABIGATRAN ETEXILATE [Concomitant]
     Active Substance: DABIGATRAN ETEXILATE
  10. HYDROXYCHLOROQUINE [Concomitant]
     Active Substance: HYDROXYCHLOROQUINE
  11. SPIRONOLACTONE. [Concomitant]
     Active Substance: SPIRONOLACTONE
  12. ALLOPURINOL. [Concomitant]
     Active Substance: ALLOPURINOL
  13. PANTOPRAZOLE [Concomitant]
     Active Substance: PANTOPRAZOLE SODIUM
  14. OMEGA-3 ACIDS [Concomitant]
     Active Substance: OMEGA-3 FATTY ACIDS
  15. BACITRACIN. [Concomitant]
     Active Substance: BACITRACIN
  16. CLOBETASOL [Concomitant]
     Active Substance: CLOBETASOL
  17. LISINOPRIL. [Concomitant]
     Active Substance: LISINOPRIL
  18. ASPIRIN. [Concomitant]
     Active Substance: ASPIRIN
  19. PIMECROLIMUS [Concomitant]
     Active Substance: PIMECROLIMUS
  20. ROSUVASTATIN. [Concomitant]
     Active Substance: ROSUVASTATIN
  21. OXYCODONE [Concomitant]
     Active Substance: OXYCODONE
  22. LEVOTHYROXINE. [Concomitant]
     Active Substance: LEVOTHYROXINE

REACTIONS (10)
  - Oxygen saturation decreased [Recovered/Resolved]
  - Cardiac failure [Unknown]
  - Dyspnoea [Unknown]
  - Hypotension [Unknown]
  - Condition aggravated [Unknown]
  - Fluid overload [Recovered/Resolved]
  - Left ventricular end-diastolic pressure increased [Unknown]
  - Exercise tolerance decreased [Unknown]
  - Oedema peripheral [Unknown]
  - Fluid retention [Unknown]

NARRATIVE: CASE EVENT DATE: 20160920
